FAERS Safety Report 19270616 (Version 3)
Quarter: 2021Q3

REPORT INFORMATION
  Report Type: Spontaneous
  Country: CA (occurrence: CA)
  Receive Date: 20210518
  Receipt Date: 20210920
  Transmission Date: 20211014
  Serious: Yes (Other)
  Sender: FDA-Public Use
  Company Number: CA-PFIZER INC-2019456072

PATIENT
  Age: 42 Year
  Sex: Female

DRUGS (6)
  1. DEXILANT [Concomitant]
     Active Substance: DEXLANSOPRAZOLE
     Dosage: UNK
  2. GENOTROPIN [Suspect]
     Active Substance: SOMATROPIN
     Dosage: 0.75 MG, 7X/WEEK
     Route: 058
     Dates: start: 2019, end: 2020
  3. EFFEXOR [Concomitant]
     Active Substance: VENLAFAXINE HYDROCHLORIDE
     Dosage: 12.5 MG
     Route: 065
  4. SYNTHROID [Concomitant]
     Active Substance: LEVOTHYROXINE SODIUM
     Dosage: 215 UG
     Route: 065
  5. GENOTROPIN [Suspect]
     Active Substance: SOMATROPIN
     Indication: GROWTH HORMONE DEFICIENCY
     Dosage: 0.5 MG, DAILY
     Route: 058
     Dates: start: 201905, end: 2019
  6. GENOTROPIN [Suspect]
     Active Substance: SOMATROPIN
     Dosage: 1.05 MG, DAILY
     Route: 058
     Dates: start: 2020

REACTIONS (13)
  - Malaise [Unknown]
  - Post procedural infection [Unknown]
  - Arthralgia [Not Recovered/Not Resolved]
  - Hypertension [Unknown]
  - Oedema peripheral [Recovered/Resolved]
  - Product prescribing error [Unknown]
  - Anaemia [Recovering/Resolving]
  - Obesity [Unknown]
  - Polymenorrhoea [Not Recovered/Not Resolved]
  - Vitamin D deficiency [Unknown]
  - Therapeutic response unexpected [Unknown]
  - Craniocerebral injury [Unknown]
  - Uterine leiomyoma [Unknown]

NARRATIVE: CASE EVENT DATE: 2019
